FAERS Safety Report 9559882 (Version 1)
Quarter: 2013Q3

REPORT INFORMATION
  Report Type: Spontaneous
  Country: AU (occurrence: None)
  Receive Date: 20130925
  Receipt Date: 20130925
  Transmission Date: 20140515
  Serious: Yes (Other)
  Sender: FDA-Public Use
  Company Number: FK201304355

PATIENT
  Age: 67 Year
  Sex: Female

DRUGS (6)
  1. DEXAMETHASONE SODIUM PHOSPHATE [Suspect]
     Indication: PLASMA CELL MYELOMA
  2. BORTEZOMIB [Suspect]
     Indication: PLASMA CELL MYELOMA
  3. PREDNISOLONE [Suspect]
  4. CYCLOPHOSPHAMIDE (CYCLOPHOSPHAMIDE) [Concomitant]
  5. THALIDOMIDE (THALIDOMIDE) [Concomitant]
  6. DOXORUBICIN (DOXORUBICIN) [Concomitant]

REACTIONS (4)
  - Cytomegalovirus chorioretinitis [None]
  - Stem cell transplant [None]
  - Plasma cell myeloma [None]
  - Malignant neoplasm progression [None]
